FAERS Safety Report 13512132 (Version 1)
Quarter: 2017Q2

REPORT INFORMATION
  Report Type: Spontaneous
  Country: IT (occurrence: IT)
  Receive Date: 20170504
  Receipt Date: 20170504
  Transmission Date: 20170830
  Serious: Yes (Other)
  Sender: FDA-Public Use
  Company Number: IT-HORIZON-PRE-0165-2017

PATIENT
  Age: 76 Year
  Sex: Female

DRUGS (6)
  1. ALGIX [Suspect]
     Active Substance: ETORICOXIB
     Indication: BACK PAIN
     Dosage: 60 MG BID
     Route: 048
     Dates: start: 20160607, end: 20160614
  2. MOBIC [Suspect]
     Active Substance: MELOXICAM
     Indication: OSTEOARTHRITIS
     Dosage: 15 MG DAILY
     Route: 048
     Dates: start: 20160301, end: 20160614
  3. PLAQUENIL [Concomitant]
     Active Substance: HYDROXYCHLOROQUINE SULFATE
  4. PREDNISONE. [Suspect]
     Active Substance: PREDNISONE
     Indication: OSTEOARTHRITIS
     Dosage: 10 MG DAILY
     Route: 048
     Dates: start: 20160301, end: 20160614
  5. DIDROGYL [Concomitant]
     Active Substance: CALCIFEDIOL
     Route: 048
  6. LANSOX [Concomitant]
     Active Substance: LANSOPRAZOLE

REACTIONS (3)
  - Rectal haemorrhage [Recovered/Resolved]
  - Abdominal pain [Recovered/Resolved]
  - Drug interaction [Recovered/Resolved]

NARRATIVE: CASE EVENT DATE: 20160611
